FAERS Safety Report 14123936 (Version 1)
Quarter: 2017Q4

REPORT INFORMATION
  Report Type: Spontaneous
  Country: IT (occurrence: IT)
  Receive Date: 20171025
  Receipt Date: 20171025
  Transmission Date: 20180321
  Serious: Yes (Other)
  Sender: FDA-Public Use
  Company Number: IT-ELI_LILLY_AND_COMPANY-IT201710007582

PATIENT
  Age: 75 Year
  Sex: Female
  Weight: 68 kg

DRUGS (2)
  1. LANTUS [Concomitant]
     Active Substance: INSULIN GLARGINE
     Indication: TYPE 2 DIABETES MELLITUS
  2. ABASAGLAR [Suspect]
     Active Substance: INSULIN GLARGINE
     Indication: TYPE 2 DIABETES MELLITUS
     Dosage: 22 IU, DAILY
     Route: 058
     Dates: start: 20170501, end: 20170901

REACTIONS (1)
  - Hyperglycaemia [Unknown]

NARRATIVE: CASE EVENT DATE: 20170901
